FAERS Safety Report 16801424 (Version 1)
Quarter: 2019Q3

REPORT INFORMATION
  Report Type: Spontaneous
  Country: US (occurrence: US)
  Receive Date: 20190912
  Receipt Date: 20190912
  Transmission Date: 20191005
  Serious: No
  Sender: FDA-Public Use
  Company Number: US-009507513-1909USA001796

PATIENT
  Age: 19 Year
  Sex: Female
  Weight: 56.69 kg

DRUGS (2)
  1. NEXPLANON [Suspect]
     Active Substance: ETONOGESTREL
     Dosage: 1 IMPLANT (UNIT #2)
     Route: 059
     Dates: start: 20190801
  2. NEXPLANON [Suspect]
     Active Substance: ETONOGESTREL
     Dosage: SINGLE IMPLANT (UNIT #1)
     Route: 059
     Dates: start: 201603

REACTIONS (3)
  - Complication associated with device [Not Recovered/Not Resolved]
  - Complication of device removal [Not Recovered/Not Resolved]
  - Overdose [Unknown]

NARRATIVE: CASE EVENT DATE: 20190801
